FAERS Safety Report 16770702 (Version 1)
Quarter: 2019Q3

REPORT INFORMATION
  Report Type: Spontaneous
  Country: GB (occurrence: GB)
  Receive Date: 20190904
  Receipt Date: 20190904
  Transmission Date: 20191005
  Serious: Yes (Life-Threatening, Hospitalization, Other)
  Sender: FDA-Public Use
  Company Number: GB-ACCORD-153382

PATIENT
  Age: 24 Year
  Sex: Male

DRUGS (9)
  1. CLOZAPINE. [Suspect]
     Active Substance: CLOZAPINE
     Indication: SCHIZOPHRENIA
     Dosage: TITRATION UP TO 225 MG/DAY
     Route: 048
     Dates: start: 20190703, end: 20190718
  2. PARACETAMOL [Concomitant]
     Active Substance: ACETAMINOPHEN
  3. ZOPICLONE [Concomitant]
     Active Substance: ZOPICLONE
  4. AMISULPRIDE [Concomitant]
     Active Substance: AMISULPRIDE
  5. OLANZAPINE. [Concomitant]
     Active Substance: OLANZAPINE
  6. VALPROIC ACID. [Concomitant]
     Active Substance: VALPROIC ACID
  7. LORAZEPAM. [Concomitant]
     Active Substance: LORAZEPAM
  8. HALOPERIDOL. [Concomitant]
     Active Substance: HALOPERIDOL
  9. PROMETHAZINE [Concomitant]
     Active Substance: PROMETHAZINE HYDROCHLORIDE

REACTIONS (3)
  - Myocarditis [Recovered/Resolved]
  - Cardiogenic shock [Unknown]
  - Malaise [Unknown]

NARRATIVE: CASE EVENT DATE: 20190714
